FAERS Safety Report 8880364 (Version 1)
Quarter: 2012Q4

REPORT INFORMATION
  Report Type: 
  Country: JP (occurrence: JP)
  Receive Date: 20121031
  Receipt Date: 20121031
  Transmission Date: 20130627
  Serious: Yes (Other)
  Sender: FDA-Public Use
  Company Number: CHPA2012JP022620

PATIENT
  Sex: Female

DRUGS (2)
  1. NICOTINELL TTS 10 [Suspect]
     Indication: SMOKING CESSATION THERAPY
     Dosage: 52.5 mg, QD
     Route: 062
     Dates: start: 2012
  2. ANTIDEPRESSANTS [Concomitant]
     Indication: DEPRESSION
     Dosage: Unk, Unk

REACTIONS (1)
  - Depression [Unknown]
